FAERS Safety Report 4811248-6 (Version None)
Quarter: 2005Q4

REPORT INFORMATION
  Report Type: 
  Country: None (occurrence: None)
  Receive Date: 20051026
  Receipt Date: 20051026
  Transmission Date: 20060501
  Serious: Yes (Life-Threatening, Hospitalization)
  Sender: FDA-Public Use
  Company Number: None

PATIENT
  Age: 83 Year
  Sex: Male

DRUGS (2)
  1. GEMZAR [Suspect]
     Indication: HODGKIN'S DISEASE
     Dosage: 1890 MG IVPB
     Route: 042
     Dates: start: 20051018
  2. GEMZAR [Suspect]
     Indication: HODGKIN'S DISEASE
     Dosage: 1890 MG IVPB
     Route: 042
     Dates: start: 20051024

REACTIONS (4)
  - ELECTROCARDIOGRAM ABNORMAL [None]
  - PO2 DECREASED [None]
  - RESPIRATORY FAILURE [None]
  - RESPIRATORY RATE INCREASED [None]
